FAERS Safety Report 4989672-0 (Version None)
Quarter: 2006Q2

REPORT INFORMATION
  Report Type: 
  Country: None (occurrence: None)
  Receive Date: 20060426
  Receipt Date: 20060410
  Transmission Date: 20061013
  Serious: Yes (Other)
  Sender: FDA-Public Use
  Company Number: US200604001646

PATIENT
  Age: 48 Year
  Sex: Female

DRUGS (4)
  1. PROZAC [Suspect]
     Indication: DEPRESSION
  2. PROZAC WEEKLY [Suspect]
     Indication: DEPRESSION
     Dates: end: 20050801
  3. INDERAL LA [Concomitant]
  4. IMITREX [Concomitant]

REACTIONS (2)
  - CONGENITAL THROMBOCYTE DISORDER [None]
  - PSORIATIC ARTHROPATHY [None]
